FAERS Safety Report 19435202 (Version 2)
Quarter: 2021Q4

REPORT INFORMATION
  Report Type: Spontaneous
  Country: US (occurrence: US)
  Receive Date: 20210617
  Receipt Date: 20211124
  Transmission Date: 20220303
  Serious: Yes (Hospitalization, Other)
  Sender: FDA-Public Use
  Company Number: US-AUROBINDO-AUR-APL-2021-024833

PATIENT
  Age: 27 Year
  Sex: Male

DRUGS (1)
  1. IBUPROFEN [Suspect]
     Active Substance: IBUPROFEN
     Indication: Product used for unknown indication
     Dosage: 600 MILLIGRAM, FOUR TIMES/DAY
     Route: 065

REACTIONS (3)
  - Haemorrhage [Recovered/Resolved]
  - Vitello-intestinal duct remnant [Recovered/Resolved]
  - Faeces discoloured [Recovered/Resolved]
